FAERS Safety Report 17586837 (Version 3)
Quarter: 2020Q2

REPORT INFORMATION
  Report Type: Spontaneous
  Country: US (occurrence: US)
  Receive Date: 20200326
  Receipt Date: 20200407
  Transmission Date: 20200713
  Serious: Yes (Disabling)
  Sender: FDA-Public Use
  Company Number: NVSC2020US077533

PATIENT
  Age: 63 Year
  Sex: Female
  Weight: 76.66 kg

DRUGS (1)
  1. RITALIN [Suspect]
     Active Substance: METHYLPHENIDATE HYDROCHLORIDE
     Indication: ATTENTION DEFICIT HYPERACTIVITY DISORDER
     Dosage: 50 MG, TID
     Route: 048
     Dates: start: 19920912

REACTIONS (12)
  - Dysgeusia [Unknown]
  - Irritability [Not Recovered/Not Resolved]
  - Agitation [Unknown]
  - Feeling jittery [Unknown]
  - Memory impairment [Not Recovered/Not Resolved]
  - Feeling abnormal [Unknown]
  - Mood altered [Unknown]
  - Depressed level of consciousness [Not Recovered/Not Resolved]
  - Therapeutic product effect variable [Unknown]
  - Lethargy [Unknown]
  - Formication [Unknown]
  - Confusional state [Unknown]

NARRATIVE: CASE EVENT DATE: 20200303
